FAERS Safety Report 20433970 (Version 1)
Quarter: 2022Q1

REPORT INFORMATION
  Report Type: Report from Study
  Country: US (occurrence: None)
  Receive Date: 20220205
  Receipt Date: 20220205
  Transmission Date: 20220424
  Serious: Yes (Hospitalization, Other)
  Sender: FDA-Public Use
  Company Number: US-ROCHE-2605429

PATIENT
  Age: 26 Year
  Sex: Female
  Weight: 76 kg

DRUGS (2)
  1. ATEZOLIZUMAB [Suspect]
     Active Substance: ATEZOLIZUMAB
     Indication: Squamous cell carcinoma of the cervix
     Dosage: ON 14/APR/2020, SHE RECEIVED LAST DOSE OF ATEZOLIZUMAB  (1200 MG)?ON DAYS 0, 21, 42
     Route: 042
     Dates: start: 20200414
  2. CISPLATIN [Suspect]
     Active Substance: CISPLATIN
     Indication: Squamous cell carcinoma of the cervix
     Dosage: ON 24/APR/2020, SHE RECEIVED OF MOST RECENT DOSE OF CISPLATIN (120MG)?ON DAYS 0, 7, 14, 21, 28, 35
     Route: 042
     Dates: start: 20200414, end: 20200427

REACTIONS (6)
  - Platelet count decreased [Unknown]
  - Febrile neutropenia [Unknown]
  - Diarrhoea [Unknown]
  - Vomiting [Unknown]
  - Nausea [Unknown]
  - Colitis [Unknown]

NARRATIVE: CASE EVENT DATE: 20200501
